FAERS Safety Report 11258735 (Version 1)
Quarter: 2015Q3

REPORT INFORMATION
  Report Type: Spontaneous
  Country: US (occurrence: None)
  Receive Date: 20150709
  Receipt Date: 20150709
  Transmission Date: 20151125
  Serious: Yes (Other)
  Sender: FDA-Public Use
  Company Number: None

PATIENT
  Age: 38 Year
  Sex: Male

DRUGS (1)
  1. MIDOSTAURIN [Suspect]
     Active Substance: MIDOSTAURIN
     Indication: SYSTEMIC MASTOCYTOSIS
     Route: 048
     Dates: start: 20140626

REACTIONS (7)
  - Abdominal discomfort [None]
  - Blood albumin decreased [None]
  - Hyperlipasaemia [None]
  - Amylase increased [None]
  - Blood sodium decreased [None]
  - Bilirubin conjugated increased [None]
  - Blood bilirubin increased [None]

NARRATIVE: CASE EVENT DATE: 20150707
